FAERS Safety Report 18284177 (Version 6)
Quarter: 2022Q1

REPORT INFORMATION
  Report Type: Spontaneous
  Country: US (occurrence: US)
  Receive Date: 20200918
  Receipt Date: 20220215
  Transmission Date: 20220423
  Serious: No
  Sender: FDA-Public Use
  Company Number: US-PFIZER INC-2020358204

PATIENT
  Age: 62 Year
  Sex: Female
  Weight: 175 kg

DRUGS (2)
  1. PREGABALIN [Suspect]
     Active Substance: PREGABALIN
     Indication: Diabetic neuropathy
     Dosage: 100 MG, 3X/DAY
     Route: 048
     Dates: start: 20200315, end: 2020
  2. PREGABALIN [Suspect]
     Active Substance: PREGABALIN
     Dosage: 100 MG (BETWEEN FOUR TO FIVE TIMES A DAY, DOUBLE UP)
     Route: 048
     Dates: start: 2020

REACTIONS (4)
  - Drug ineffective [Unknown]
  - Intentional product use issue [Unknown]
  - Breakthrough pain [Not Recovered/Not Resolved]
  - Off label use [Unknown]
